FAERS Safety Report 17217198 (Version 1)
Quarter: 2019Q4

REPORT INFORMATION
  Report Type: Spontaneous
  Country: IT (occurrence: IT)
  Receive Date: 20191231
  Receipt Date: 20191231
  Transmission Date: 20200122
  Serious: Yes (Hospitalization, Other)
  Sender: FDA-Public Use
  Company Number: IT-AUROBINDO-AUR-APL-2019-107909

PATIENT
  Age: 57 Year
  Sex: Male

DRUGS (3)
  1. FLUNOX [Suspect]
     Active Substance: FLURAZEPAM HYDROCHLORIDE
     Indication: PRODUCT USED FOR UNKNOWN INDICATION
     Dosage: 19 DOSAGE FORM, TOTAL
     Route: 048
     Dates: start: 20190825, end: 20190825
  2. ZOLPIDEM [Suspect]
     Active Substance: ZOLPIDEM TARTRATE
     Indication: PRODUCT USED FOR UNKNOWN INDICATION
     Dosage: 7 DOSAGE FORM, TOTAL
     Route: 048
     Dates: start: 20190825, end: 20190825
  3. OLANZAPINE. [Suspect]
     Active Substance: OLANZAPINE
     Indication: PRODUCT USED FOR UNKNOWN INDICATION
     Dosage: 7 DOSAGE FORM, TOTAL
     Route: 048
     Dates: start: 20190825, end: 20190825

REACTIONS (2)
  - Psychomotor hyperactivity [Unknown]
  - Drug abuse [Unknown]

NARRATIVE: CASE EVENT DATE: 20190825
